FAERS Safety Report 6269717-0 (Version None)
Quarter: 2009Q3

REPORT INFORMATION
  Report Type: 
  Country: None (occurrence: None)
  Receive Date: 20090716
  Receipt Date: 20090709
  Transmission Date: 20100115
  Serious: Yes (Life-Threatening, Hospitalization, Other)
  Sender: FDA-Public Use
  Company Number: US-ELI_LILLY_AND_COMPANY-US200907001773

PATIENT
  Sex: Female

DRUGS (9)
  1. FORTEO [Suspect]
     Dosage: 20 UG, DAILY (1/D)
     Dates: start: 20090701
  2. DIGOXIN [Concomitant]
  3. DILTIAZEM [Concomitant]
  4. METOPROLOL TARTRATE [Concomitant]
     Dates: end: 20090701
  5. COUMADIN [Concomitant]
  6. NORDITROPIN [Concomitant]
     Dates: start: 20090701
  7. LISINOPRIL [Concomitant]
     Dates: end: 20090701
  8. ARICEPT [Concomitant]
  9. NAMENDA [Concomitant]

REACTIONS (6)
  - ABDOMINAL PAIN UPPER [None]
  - BACK PAIN [None]
  - CHEST PAIN [None]
  - CHRONIC OBSTRUCTIVE PULMONARY DISEASE [None]
  - DYSPNOEA [None]
  - RESPIRATORY ARREST [None]
